FAERS Safety Report 8344869-7 (Version None)
Quarter: 2012Q2

REPORT INFORMATION
  Report Type: 
  Country: None (occurrence: None)
  Receive Date: 20120508
  Receipt Date: 20120430
  Transmission Date: 20120825
  Serious: Yes (Other)
  Sender: FDA-Public Use
  Company Number: JP-GLAXOSMITHKLINE-B0799339A

PATIENT

DRUGS (1)
  1. LAMOTRIGINE [Suspect]
     Indication: PRODUCT USED FOR UNKNOWN INDICATION
     Route: 065

REACTIONS (7)
  - TOXIC EPIDERMAL NECROLYSIS [None]
  - HEPATIC FUNCTION ABNORMAL [None]
  - PYREXIA [None]
  - LYMPHADENOPATHY [None]
  - HUMAN HERPESVIRUS 6 INFECTION [None]
  - LEUKOCYTOSIS [None]
  - STEVENS-JOHNSON SYNDROME [None]
